FAERS Safety Report 9980918 (Version 1)
Quarter: 2014Q1

REPORT INFORMATION
  Report Type: Spontaneous
  Country: US (occurrence: US)
  Receive Date: 20140307
  Receipt Date: 20140307
  Transmission Date: 20141002
  Serious: Yes (Other)
  Sender: FDA-Public Use
  Company Number: US-ELI_LILLY_AND_COMPANY-US201402008179

PATIENT
  Sex: Female

DRUGS (7)
  1. CYMBALTA [Suspect]
     Indication: DEPRESSION
     Dosage: 60 MG, BID
     Dates: start: 2009
  2. CYMBALTA [Suspect]
     Indication: NEUROPATHY PERIPHERAL
  3. COPAXONE [Concomitant]
     Indication: MULTIPLE SCLEROSIS
     Dosage: 20 MG, QD
     Route: 051
  4. SIMVASTATIN [Concomitant]
     Dosage: 20 MG, UNKNOWN
  5. PANTOPRAZOLE [Concomitant]
     Dosage: 40 MG, UNKNOWN
  6. KLONOPIN [Concomitant]
     Dosage: 1 MG, TID
  7. VITAMIN D [Concomitant]
     Dosage: 5000 U, QD

REACTIONS (3)
  - Blindness unilateral [Unknown]
  - Retinal detachment [Not Recovered/Not Resolved]
  - Cataract [Unknown]
